FAERS Safety Report 9424045 (Version 1)
Quarter: 2013Q3

REPORT INFORMATION
  Report Type: Spontaneous
  Country: DE (occurrence: DE)
  Receive Date: 20130729
  Receipt Date: 20130729
  Transmission Date: 20140515
  Serious: Yes (Congenital Anomaly)
  Sender: FDA-Public Use
  Company Number: GXKR2013DE002478

PATIENT
  Sex: 0

DRUGS (4)
  1. PROMETHAZINE [Suspect]
     Dosage: MATERNAL DOSE: 1X150 [MG/D ]
     Route: 064
     Dates: start: 20040702, end: 20050410
  2. TREVILOR - SLOW RELEASE [Concomitant]
     Dosage: MATERNAL DOSE: 1X75 [MG/D ]
     Route: 064
  3. VALIUM [Concomitant]
     Dosage: MATERNAL DOSE: 1X2 [MG/D ]/ NOT ON A REGULAR BASIS
     Route: 064
  4. FOLATE [Concomitant]
     Indication: PROPHYLAXIS OF NEURAL TUBE DEFECT
     Dosage: MATERNAL DOSE: 1X0.4 [MG/D ]
     Route: 064

REACTIONS (2)
  - Pulmonary artery stenosis congenital [Unknown]
  - Atrial septal defect [Unknown]
